FAERS Safety Report 19686329 (Version 1)
Quarter: 2021Q3

REPORT INFORMATION
  Report Type: Spontaneous
  Country: US (occurrence: US)
  Receive Date: 20210811
  Receipt Date: 20210811
  Transmission Date: 20211014
  Serious: Yes (Hospitalization)
  Sender: FDA-Public Use
  Company Number: US-ASTRAZENECA-2021A665980

PATIENT
  Age: 46 Year
  Sex: Male
  Weight: 92.5 kg

DRUGS (3)
  1. BYETTA [Suspect]
     Active Substance: EXENATIDE
     Indication: DIABETES MELLITUS
     Route: 058
     Dates: start: 202101
  2. GABAPENTIN. [Concomitant]
     Active Substance: GABAPENTIN
  3. BYETTA [Suspect]
     Active Substance: EXENATIDE
     Indication: DIABETES MELLITUS
     Route: 058
     Dates: start: 2017

REACTIONS (9)
  - Weight decreased [Not Recovered/Not Resolved]
  - Product dose omission issue [Not Recovered/Not Resolved]
  - White blood cell count increased [Unknown]
  - Memory impairment [Not Recovered/Not Resolved]
  - Fasciitis [Unknown]
  - Decreased appetite [Unknown]
  - Extra dose administered [Not Recovered/Not Resolved]
  - Blood glucose decreased [Unknown]
  - Neuropathy peripheral [Recovering/Resolving]

NARRATIVE: CASE EVENT DATE: 2020
